FAERS Safety Report 7232827-5 (Version None)
Quarter: 2011Q1

REPORT INFORMATION
  Report Type: 
  Country: None (occurrence: None)
  Receive Date: 20110106
  Receipt Date: 20101222
  Transmission Date: 20110831
  Serious: Yes (Hospitalization)
  Sender: FDA-Public Use
  Company Number: 024305

PATIENT
  Sex: Male
  Weight: 133 kg

DRUGS (4)
  1. KEPPRA [Concomitant]
  2. LAMOTRIGINE [Concomitant]
  3. LACOSAMIDE [Suspect]
     Indication: EPILEPSY
     Dosage: 25 MG BID, WEEK 1; 50 MG BID, WEEK 2; 50/100 MG WEEK 3; 100 MG BID, FROM WEEK 4 ORAL
     Route: 048
     Dates: start: 20101013
  4. TEGRETOL [Concomitant]

REACTIONS (4)
  - CONDITION AGGRAVATED [None]
  - BLOOD PRESSURE DIASTOLIC INCREASED [None]
  - PARTIAL SEIZURES [None]
  - ATRIAL FLUTTER [None]
